FAERS Safety Report 19111306 (Version 1)
Quarter: 2021Q2

REPORT INFORMATION
  Report Type: Spontaneous
  Country: US (occurrence: US)
  Receive Date: 20210409
  Receipt Date: 20210409
  Transmission Date: 20210717
  Serious: No
  Sender: FDA-Public Use
  Company Number: US-IGSA-BIG0013252

PATIENT
  Age: 68 Year
  Sex: Female

DRUGS (8)
  1. PROTONIX [OMEPRAZOLE] [Concomitant]
     Active Substance: OMEPRAZOLE
  2. GAMUNEX?C [Suspect]
     Active Substance: HUMAN IMMUNOGLOBULIN G
     Indication: IMMUNODEFICIENCY COMMON VARIABLE
     Dosage: 40 GRAM
     Route: 042
     Dates: start: 20210208, end: 20210208
  3. SINGULAIR [Concomitant]
     Active Substance: MONTELUKAST SODIUM
  4. VITAMIN C [Concomitant]
     Active Substance: ASCORBIC ACID
  5. VITAMIN E [Concomitant]
     Active Substance: .ALPHA.-TOCOPHEROL
  6. FLONASE [Concomitant]
     Active Substance: FLUTICASONE PROPIONATE
  7. GAMUNEX?C [Suspect]
     Active Substance: HUMAN IMMUNOGLOBULIN G
     Dosage: 40 GRAM
     Route: 042
  8. SIMVASTATIN. [Concomitant]
     Active Substance: SIMVASTATIN

REACTIONS (4)
  - Flushing [Recovered/Resolved]
  - Pruritus [Recovered/Resolved]
  - Swelling [Recovered/Resolved]
  - Urticaria [Recovered/Resolved]

NARRATIVE: CASE EVENT DATE: 20210208
